FAERS Safety Report 6612309 (Version 3)
Quarter: 2013Q1

REPORT INFORMATION
  Report Type: Spontaneous
  Country: GB (occurrence: GB)
  Receive Date: 20080411
  Receipt Date: 20130218
  Transmission Date: 20140127
  Serious: Yes (Hospitalization, Other)
  Sender: FDA-Public Use
  Company Number: PHFR2008GB01229

PATIENT
  Sex: Female

DRUGS (1)
  1. CLOZARIL [Suspect]
     Indication: SCHIZOPHRENIA
     Dosage: UNK
     Route: 048
     Dates: start: 20060508, end: 20080318

REACTIONS (5)
  - Type 2 diabetes mellitus [Unknown]
  - Cardiomyopathy [Unknown]
  - Mental impairment [Unknown]
  - Cardiac disorder [Unknown]
  - Hypercholesterolaemia [Unknown]
